FAERS Safety Report 13662133 (Version 3)
Quarter: 2018Q1

REPORT INFORMATION
  Report Type: Report from Study
  Country: GB (occurrence: GB)
  Receive Date: 20170616
  Receipt Date: 20180228
  Transmission Date: 20180508
  Serious: Yes (Death, Hospitalization)
  Sender: FDA-Public Use
  Company Number: GB-BIOGEN-2017BI00416313

PATIENT
  Age: 3 Month
  Sex: Male

DRUGS (2)
  1. NUSINERSEN [Suspect]
     Active Substance: NUSINERSEN
     Indication: SPINAL MUSCULAR ATROPHY
     Dosage: 4ML/9.6MG
     Route: 037
     Dates: start: 20170525
  2. NUSINERSEN [Suspect]
     Active Substance: NUSINERSEN
     Dosage: 4ML/9.6MG
     Route: 037
     Dates: start: 20170612

REACTIONS (1)
  - Acute respiratory failure [Fatal]

NARRATIVE: CASE EVENT DATE: 20170619
